FAERS Safety Report 20492803 (Version 1)
Quarter: 2022Q1

REPORT INFORMATION
  Report Type: Report from Study
  Country: CA (occurrence: CA)
  Receive Date: 20220219
  Receipt Date: 20220219
  Transmission Date: 20220424
  Serious: Yes (Hospitalization)
  Sender: FDA-Public Use
  Company Number: CA-NOVARTISPH-NVSC2020CA314996

PATIENT
  Age: 48 Year
  Sex: Female

DRUGS (1)
  1. MAYZENT [Suspect]
     Active Substance: SIPONIMOD
     Indication: Secondary progressive multiple sclerosis
     Dosage: UNK
     Route: 048
     Dates: start: 20201028

REACTIONS (10)
  - Mobility decreased [Unknown]
  - Facial pain [Recovered/Resolved]
  - Scab [Unknown]
  - Product supply issue [Unknown]
  - Gait disturbance [Unknown]
  - Pollakiuria [Unknown]
  - Strabismus [Recovered/Resolved]
  - Vision blurred [Recovered/Resolved]
  - Weight increased [Unknown]
  - Fatigue [Unknown]

NARRATIVE: CASE EVENT DATE: 20201120
